FAERS Safety Report 24308049 (Version 1)
Quarter: 2024Q3

REPORT INFORMATION
  Report Type: Report from Study
  Country: US (occurrence: US)
  Receive Date: 20240911
  Receipt Date: 20240911
  Transmission Date: 20241017
  Serious: No
  Sender: SUNOVION
  Company Number: US-SUMITOMO PHARMA SWITZERLAND GMBH-2024SPA002183

PATIENT

DRUGS (4)
  1. ORGOVYX [Suspect]
     Active Substance: RELUGOLIX
     Indication: Prostate cancer
     Dosage: 360 MG, SINGLE
     Route: 048
  2. ORGOVYX [Suspect]
     Active Substance: RELUGOLIX
     Dosage: 120 MG, QD
     Route: 048
  3. DOCETAXEL [Suspect]
     Active Substance: DOCETAXEL\DOCETAXEL ANHYDROUS
     Dosage: UNKNOWN
     Route: 065
  4. XTANDI [Concomitant]
     Active Substance: ENZALUTAMIDE
     Dosage: UNKNOWN
     Route: 065

REACTIONS (4)
  - Balance disorder [Unknown]
  - Dyspnoea exertional [Unknown]
  - Asthenia [Unknown]
  - Fatigue [Unknown]
